FAERS Safety Report 11718106 (Version 2)
Quarter: 2016Q1

REPORT INFORMATION
  Report Type: Spontaneous
  Country: SE (occurrence: SE)
  Receive Date: 20151110
  Receipt Date: 20160201
  Transmission Date: 20160525
  Serious: Yes (Life-Threatening)
  Sender: FDA-Public Use
  Company Number: SE-SA-2015SA178367

PATIENT
  Age: 37 Year
  Sex: Female

DRUGS (12)
  1. ARAVA [Suspect]
     Active Substance: LEFLUNOMIDE
     Indication: PSORIATIC ARTHROPATHY
     Route: 048
     Dates: start: 20150109, end: 20150825
  2. PULMICORT TURBUHALER [Concomitant]
     Active Substance: BUDESONIDE
  3. KALCIPOS [Concomitant]
     Active Substance: CALCIUM CARBONATE
  4. BEHEPAN [Concomitant]
     Active Substance: HYDROXOCOBALAMIN
  5. CYSTEINE [Concomitant]
     Active Substance: CYSTEINE
  6. DOLCONTIN [Concomitant]
     Active Substance: MORPHINE
  7. ALVEDON [Concomitant]
     Active Substance: ACETAMINOPHEN
  8. SAROTEN [Concomitant]
     Active Substance: AMITRIPTYLINE
  9. OMEPRAZOLE. [Concomitant]
     Active Substance: OMEPRAZOLE
  10. PREDNISOLONE. [Concomitant]
     Active Substance: PREDNISOLONE
  11. PROPAVAN [Concomitant]
     Active Substance: PROPIOMAZINE
  12. OXIS [Concomitant]
     Active Substance: FORMOTEROL FUMARATE

REACTIONS (7)
  - Interstitial lung disease [Recovering/Resolving]
  - Sinusitis [Recovering/Resolving]
  - Cardiac failure [Recovering/Resolving]
  - Dyspnoea [Recovering/Resolving]
  - Chest pain [Recovering/Resolving]
  - Haemoptysis [Recovering/Resolving]
  - Computerised tomogram abnormal [Recovering/Resolving]

NARRATIVE: CASE EVENT DATE: 20150825
